FAERS Safety Report 9542498 (Version 2)
Quarter: 2013Q3

REPORT INFORMATION
  Report Type: Spontaneous
  Country: US (occurrence: None)
  Receive Date: 20130918
  Receipt Date: 20130925
  Transmission Date: 20140515
  Serious: Yes (Hospitalization)
  Sender: FDA-Public Use
  Company Number: AUR-APL-2013-07747

PATIENT
  Age: 75 Year
  Sex: Female
  Weight: 58.82 kg

DRUGS (9)
  1. CARVEDILOL [Suspect]
     Indication: HYPERTENSION
     Dosage: 12.5 MG (6.25 MG, 2 IN 1 D), ORAL
     Route: 048
     Dates: start: 2011
  2. NIFEDIPINE [Suspect]
     Indication: HYPERTENSION
     Route: 048
     Dates: start: 2011
  3. LASIX (FUROSEMIDE) [Concomitant]
  4. ULORIC (FEBUXOSTAT) [Concomitant]
  5. KCL (POTASSIUM CHLORIDE) [Concomitant]
  6. ASPIRIN (ACETYLSALICYLIC ACID) [Concomitant]
  7. CALCITRIOL (CALCITRIOL) [Concomitant]
  8. FAMOTIDINE (FAMOTIDINE) [Concomitant]
  9. ATORVASTATIN (ATORVASTATIN) [Concomitant]

REACTIONS (17)
  - Dizziness [None]
  - Vision blurred [None]
  - Hypotension [None]
  - Proteinuria [None]
  - Renal failure acute [None]
  - Nodal arrhythmia [None]
  - Blood chloride increased [None]
  - Carbon dioxide decreased [None]
  - Hyperkalaemia [None]
  - Right atrial dilatation [None]
  - Mitral valve incompetence [None]
  - Aortic valve calcification [None]
  - Diastolic dysfunction [None]
  - Tricuspid valve incompetence [None]
  - Pulmonary hypertension [None]
  - Pulmonary valve incompetence [None]
  - Pericardial effusion [None]
